FAERS Safety Report 7803428-2 (Version None)
Quarter: 2011Q4

REPORT INFORMATION
  Report Type: 
  Country: None (occurrence: None)
  Receive Date: 20111007
  Receipt Date: 20111003
  Transmission Date: 20120403
  Serious: Yes (Hospitalization, Other)
  Sender: FDA-Public Use
  Company Number: US-ABBOTT-11P-163-0860879-00

PATIENT
  Age: 58 Year
  Sex: Male

DRUGS (1)
  1. HUMIRA [Suspect]
     Indication: PSORIATIC ARTHROPATHY
     Route: 058
     Dates: start: 20080101

REACTIONS (6)
  - PRECANCEROUS SKIN LESION [None]
  - DIVERTICULITIS [None]
  - PAIN [None]
  - SPINAL LAMINECTOMY [None]
  - ABDOMINAL PAIN [None]
  - WEIGHT DECREASED [None]
